FAERS Safety Report 7275371-1 (Version None)
Quarter: 2011Q1

REPORT INFORMATION
  Report Type: 
  Country: None (occurrence: None)
  Receive Date: 20110204
  Receipt Date: 20110124
  Transmission Date: 20110831
  Serious: Yes (Other)
  Sender: FDA-Public Use
  Company Number: US-ELI_LILLY_AND_COMPANY-US201101006218

PATIENT
  Age: 25 Year
  Sex: Male

DRUGS (4)
  1. STRATTERA [Suspect]
     Dosage: 80 MG, DAILY (1/D)
  2. STRATTERA [Suspect]
     Indication: ATTENTION DEFICIT/HYPERACTIVITY DISORDER
     Dosage: 18 MG, DAILY (1/D)
  3. STRATTERA [Suspect]
     Dosage: 1 D/F, DAILY (1/D)
  4. SYNTHROID [Concomitant]
     Dosage: 1 D/F, UNK

REACTIONS (9)
  - NAUSEA [None]
  - VOMITING [None]
  - FEELING ABNORMAL [None]
  - HYPERSOMNIA [None]
  - ABDOMINAL PAIN [None]
  - ANGER [None]
  - SUICIDAL IDEATION [None]
  - INSOMNIA [None]
  - DRUG INEFFECTIVE [None]
